FAERS Safety Report 7283013-4 (Version None)
Quarter: 2011Q1

REPORT INFORMATION
  Report Type: 
  Country: None (occurrence: None)
  Receive Date: 20110125
  Receipt Date: 20110110
  Transmission Date: 20110831
  Serious: Yes (Death)
  Sender: FDA-Public Use
  Company Number: 025621

PATIENT
  Age: 65 Year
  Sex: Male

DRUGS (8)
  1. LAMOTRIGINE [Suspect]
     Dosage: ORAL
     Route: 048
  2. ALPRAZOLAM [Suspect]
     Dosage: ORAL
     Route: 048
  3. VENLAFAXINE [Suspect]
     Dosage: ORAL
     Route: 048
  4. PROPRANOLOL [Suspect]
     Dosage: ORAL
     Route: 048
  5. WARFARIN [Suspect]
     Dosage: ORAL
     Route: 048
  6. MODAFINIL [Suspect]
     Dosage: ORAL
     Route: 048
  7. ACETAMINOPHEN [Suspect]
     Dosage: ORAL
     Route: 048
  8. DOXEPIN [Suspect]
     Dosage: ORAL
     Route: 048

REACTIONS (4)
  - CARDIAC ARREST [None]
  - COMPLETED SUICIDE [None]
  - POISONING DELIBERATE [None]
  - RESPIRATORY ARREST [None]
